FAERS Safety Report 8533931 (Version 2)
Quarter: 2013Q1

REPORT INFORMATION
  Report Type: Spontaneous
  Country: US (occurrence: US)
  Receive Date: 20120427
  Receipt Date: 20130107
  Transmission Date: 20140127
  Serious: Yes (Hospitalization)
  Sender: FDA-Public Use
  Company Number: US-ABBOTT-12P-163-0927830-00

PATIENT
  Age: 66 None
  Sex: Female
  Weight: 69.01 kg

DRUGS (6)
  1. HUMIRA 40 MG/0.8 ML PEN [Suspect]
     Indication: PSORIASIS
     Dates: start: 2010
  2. HUMIRA 40 MG/0.8 ML PEN [Suspect]
     Indication: PSORIATIC ARTHROPATHY
  3. METHOTREXATE [Concomitant]
     Indication: PSORIATIC ARTHROPATHY
  4. FOLIC ACID [Concomitant]
     Indication: VITAMIN SUPPLEMENTATION
  5. XANAX [Concomitant]
     Indication: ANXIETY
  6. SOMA [Concomitant]
     Indication: ARTHRALGIA

REACTIONS (2)
  - Cerebrovascular accident [Not Recovered/Not Resolved]
  - Migraine [Not Recovered/Not Resolved]
